FAERS Safety Report 5300473-6 (Version None)
Quarter: 2007Q2

REPORT INFORMATION
  Report Type: 
  Country: None (occurrence: None)
  Receive Date: 20070413
  Receipt Date: 20070413
  Transmission Date: 20071010
  Serious: Yes (Hospitalization)
  Sender: FDA-Public Use
  Company Number: None

PATIENT
  Age: 65 Year
  Sex: Male
  Weight: 65 kg

DRUGS (12)
  1. WARFARIN SODIUM [Suspect]
     Indication: ATRIAL FIBRILLATION
     Dosage: 7.5MG/5MG WED/ROW PO
     Route: 048
     Dates: start: 20040920, end: 20061120
  2. ASPIRIN [Suspect]
     Indication: CORONARY ARTERY DISEASE
     Dosage: 81MG DAILY PO
     Route: 048
     Dates: start: 19990111, end: 20070314
  3. TAMULOSIN [Concomitant]
  4. VENLAFLAXINE [Concomitant]
  5. ASPIRIN [Concomitant]
  6. SELENIUM SULFIDE [Concomitant]
  7. M.V.I. [Concomitant]
  8. CALCIUM [Concomitant]
  9. FOLATE [Concomitant]
  10. SIMVASTATIN [Concomitant]
  11. LISINOPRIL [Concomitant]
  12. VITAMIN B-12 [Concomitant]

REACTIONS (5)
  - DIVERTICULUM INTESTINAL HAEMORRHAGIC [None]
  - GASTRITIS [None]
  - GASTROINTESTINAL HAEMORRHAGE [None]
  - HAEMORRHOIDS [None]
  - INTERNATIONAL NORMALISED RATIO INCREASED [None]
